FAERS Safety Report 6452589-9 (Version None)
Quarter: 2009Q4

REPORT INFORMATION
  Report Type: 
  Country: None (occurrence: None)
  Receive Date: 20091124
  Receipt Date: 20091118
  Transmission Date: 20100525
  Serious: Yes (Hospitalization)
  Sender: FDA-Public Use
  Company Number: US-BIOGENIDEC-2008BI012032

PATIENT
  Age: 33 Year
  Sex: Female

DRUGS (1)
  1. TYSABRI [Suspect]
     Indication: MULTIPLE SCLEROSIS
     Route: 042
     Dates: start: 20061114

REACTIONS (5)
  - FATIGUE [None]
  - GASTROENTERITIS VIRAL [None]
  - HEADACHE [None]
  - INSOMNIA [None]
  - MULTIPLE SCLEROSIS RELAPSE [None]
